FAERS Safety Report 7804078-4 (Version None)
Quarter: 2011Q4

REPORT INFORMATION
  Report Type: 
  Country: None (occurrence: None)
  Receive Date: 20111010
  Receipt Date: 20111003
  Transmission Date: 20120403
  Serious: Yes (Other)
  Sender: FDA-Public Use
  Company Number: FR-PFIZER INC-2011175808

PATIENT
  Age: 73 Year
  Sex: Female

DRUGS (1)
  1. ALDACTONE [Suspect]
     Indication: HYPERTENSION
     Dosage: 50 MG, 1X/DAY
     Dates: start: 20110728, end: 20110802

REACTIONS (6)
  - OEDEMA PERIPHERAL [None]
  - HEADACHE [None]
  - ERYTHEMA [None]
  - VIITH NERVE PARALYSIS [None]
  - PRODUCT TASTE ABNORMAL [None]
  - COUGH [None]
